FAERS Safety Report 7639642-9 (Version None)
Quarter: 2011Q3

REPORT INFORMATION
  Report Type: 
  Country: None (occurrence: None)
  Receive Date: 20110727
  Receipt Date: 20110718
  Transmission Date: 20111222
  Serious: Yes (Hospitalization)
  Sender: FDA-Public Use
  Company Number: GB-GENENTECH-319153

PATIENT
  Sex: Male
  Weight: 78.2 kg

DRUGS (6)
  1. RITUXIMAB [Suspect]
     Indication: B-CELL LYMPHOMA
     Dosage: 750 MG, QAM
     Route: 042
     Dates: start: 20110504
  2. PREDNISOLONE [Suspect]
     Indication: B-CELL LYMPHOMA
     Dosage: 80 MG, QAM
     Route: 048
     Dates: start: 20110504, end: 20110510
  3. COTRIM [Concomitant]
     Indication: PRODUCT USED FOR UNKNOWN INDICATION
     Dosage: 2400 MG, UNK
     Dates: start: 20110527, end: 20110609
  4. CYCLOPHOSPHAMIDE [Suspect]
     Indication: B-CELL LYMPHOMA
     Dosage: 1500 MG, QAM
     Route: 042
     Dates: start: 20110504
  5. VINCRISTINE [Suspect]
     Indication: B-CELL LYMPHOMA
     Dosage: 2 MG, QAM
     Route: 042
     Dates: start: 20110504
  6. ALLOPURINOL [Concomitant]
     Indication: PRODUCT USED FOR UNKNOWN INDICATION
     Dosage: 300 MG, QAM
     Route: 048

REACTIONS (7)
  - OESOPHAGITIS [None]
  - FEBRILE NEUTROPENIA [None]
  - CANDIDIASIS [None]
  - HYPOXIA [None]
  - DUODENAL ULCER [None]
  - DYSPNOEA [None]
  - INFECTION [None]
